FAERS Safety Report 13924177 (Version 1)
Quarter: 2017Q3

REPORT INFORMATION
  Report Type: Spontaneous
  Country: US (occurrence: None)
  Receive Date: 20170830
  Receipt Date: 20170830
  Transmission Date: 20171127
  Serious: No
  Sender: FDA-Public Use
  Company Number: None

PATIENT
  Age: 33 Year
  Sex: Female
  Weight: 101.61 kg

DRUGS (6)
  1. PNV [Concomitant]
  2. PEPCID [Concomitant]
     Active Substance: FAMOTIDINE
  3. SUBOXONE [Concomitant]
     Active Substance: BUPRENORPHINE HYDROCHLORIDE\NALOXONE HYDROCHLORIDE
  4. ZOFRAN [Concomitant]
     Active Substance: ONDANSETRON HYDROCHLORIDE
  5. BUPENORPHINE - NALOXONE TABLET SL [Suspect]
     Active Substance: BUPRENORPHINE HYDROCHLORIDE\NALOXONE HYDROCHLORIDE
     Indication: DRUG DEPENDENCE
     Dosage: DOSE AMOUNT - 8MG - 2MG
     Route: 048
     Dates: start: 20170718, end: 20170830
  6. STOOL SOFTENER (DOCUSATE) [Concomitant]
     Active Substance: DOCUSATE

REACTIONS (10)
  - Weight increased [None]
  - Withdrawal syndrome [None]
  - Drug dependence [None]
  - Rhinorrhoea [None]
  - Headache [None]
  - Therapy change [None]
  - Vomiting [None]
  - Hyperhidrosis [None]
  - Nausea [None]
  - Abnormal dreams [None]

NARRATIVE: CASE EVENT DATE: 20170725
